FAERS Safety Report 8353421-9 (Version None)
Quarter: 2012Q2

REPORT INFORMATION
  Report Type: 
  Country: None (occurrence: None)
  Receive Date: 20120511
  Receipt Date: 20110412
  Transmission Date: 20120825
  Serious: No
  Sender: FDA-Public Use
  Company Number: US-GLAXOSMITHKLINE-A0843263A

PATIENT
  Age: 52 Year
  Sex: Female

DRUGS (2)
  1. TYKERB [Suspect]
     Indication: BREAST CANCER
     Dosage: 5TAB PER DAY
     Route: 048
     Dates: start: 20100201
  2. COUMADIN [Concomitant]

REACTIONS (9)
  - EPISTAXIS [None]
  - DIARRHOEA [None]
  - LACERATION [None]
  - RASH [None]
  - DERMATITIS ACNEIFORM [None]
  - DRY SKIN [None]
  - COUGH [None]
  - NASAL ULCER [None]
  - LIP DISCOLOURATION [None]
